FAERS Safety Report 13689697 (Version 1)
Quarter: 2017Q2

REPORT INFORMATION
  Report Type: Spontaneous
  Country: CN (occurrence: CN)
  Receive Date: 20170626
  Receipt Date: 20170626
  Transmission Date: 20170830
  Serious: Yes (Hospitalization)
  Sender: FDA-Public Use
  Company Number: CN-BAYER-2017-115773

PATIENT
  Age: 57 Year
  Sex: Male
  Weight: 65 kg

DRUGS (2)
  1. NEXAVAR [Suspect]
     Active Substance: SORAFENIB
     Indication: RENAL CELL CARCINOMA
     Dosage: 600 MG, BID
     Route: 048
     Dates: start: 20121127
  2. NEXAVAR [Suspect]
     Active Substance: SORAFENIB
     Indication: RENAL CELL CARCINOMA
     Dosage: 400 MG, BID
     Route: 048
     Dates: start: 20090327

REACTIONS (8)
  - Hilar lymphadenopathy [None]
  - Lymphadenopathy mediastinal [None]
  - Off label use [None]
  - Lung disorder [None]
  - Lung disorder [None]
  - Lymphadenopathy mediastinal [None]
  - Hilar lymphadenopathy [None]
  - Metastases to adrenals [None]

NARRATIVE: CASE EVENT DATE: 20121117
